FAERS Safety Report 8473941-6 (Version None)
Quarter: 2012Q2

REPORT INFORMATION
  Report Type: 
  Country: None (occurrence: None)
  Receive Date: 20120628
  Receipt Date: 20120320
  Transmission Date: 20120825
  Serious: No
  Sender: FDA-Public Use
  Company Number: US-MYLANLABS-2012S1003462

PATIENT
  Age: 25 Year
  Sex: Female

DRUGS (3)
  1. CLOZAPINE [Suspect]
     Route: 048
     Dates: end: 20120201
  2. LITHIUM CARBONATE [Concomitant]
     Indication: SCHIZOPHRENIA
  3. CLOZAPINE [Suspect]
     Indication: SCHIZOPHRENIA
     Route: 048
     Dates: end: 20120201

REACTIONS (3)
  - BLOOD CHOLESTEROL DECREASED [None]
  - VITAMIN D DECREASED [None]
  - BLOOD TRIGLYCERIDES DECREASED [None]
